FAERS Safety Report 8780113 (Version 1)
Quarter: 2012Q4

REPORT INFORMATION
  Report Type: Spontaneous
  Country: US (occurrence: None)
  Receive Date: 20120904
  Receipt Date: 20120904
  Transmission Date: 20130627
  Serious: Yes (Other)
  Sender: FDA-Public Use
  Company Number: None

PATIENT
  Age: 6 Year
  Sex: Female
  Weight: 30 kg

DRUGS (2)
  1. IVERMECTIN/STROMECTOL [Suspect]
     Route: 048
     Dates: start: 20120826
  2. MEBENDAZOLE [Concomitant]

REACTIONS (4)
  - Abdominal pain upper [None]
  - Nausea [None]
  - No therapeutic response [None]
  - Activities of daily living impaired [None]
